FAERS Safety Report 4695415-0 (Version None)
Quarter: 2005Q2

REPORT INFORMATION
  Report Type: 
  Country: None (occurrence: None)
  Receive Date: 20050608
  Receipt Date: 20050329
  Transmission Date: 20051028
  Serious: Yes (Other)
  Sender: FDA-Public Use
  Company Number: 400291

PATIENT

DRUGS (2)
  1. ACCUTANE [Suspect]
     Indication: ACNE CYSTIC
     Dates: start: 20031112, end: 20040415
  2. ACCUTANE [Suspect]
     Indication: ACNE CYSTIC
     Dates: start: 20031112, end: 20040415

REACTIONS (2)
  - ABORTION INDUCED [None]
  - PREGNANCY [None]
